FAERS Safety Report 7496921-6 (Version None)
Quarter: 2011Q2

REPORT INFORMATION
  Report Type: 
  Country: None (occurrence: None)
  Receive Date: 20110523
  Receipt Date: 20110517
  Transmission Date: 20111010
  Serious: Yes (Hospitalization, Other)
  Sender: FDA-Public Use
  Company Number: US-MERCK-1105USA01191

PATIENT
  Age: 45 Year
  Sex: Male

DRUGS (3)
  1. JANUVIA [Suspect]
     Indication: DIABETES MELLITUS
     Route: 048
  2. ZOCOR [Suspect]
     Route: 048
  3. METFORMIN [Concomitant]
     Route: 065

REACTIONS (2)
  - PANCREATITIS ACUTE [None]
  - GALLBLADDER DISORDER [None]
